FAERS Safety Report 5821623-9 (Version None)
Quarter: 2008Q3

REPORT INFORMATION
  Report Type: 
  Country: None (occurrence: None)
  Receive Date: 20080714
  Receipt Date: 20070818
  Transmission Date: 20090109
  Serious: Yes (Hospitalization)
  Sender: FDA-Public Use
  Company Number: 502947

PATIENT
  Age: 80 Year
  Sex: Female

DRUGS (6)
  1. BONIVA [Suspect]
     Indication: OSTEOPOROSIS
     Dosage: 150 MG
     Dates: start: 20050101
  2. PLAVIX [Concomitant]
  3. METOPROLOL TARTRATE [Concomitant]
  4. ASPIRIN [Concomitant]
  5. GABAPENTIN [Concomitant]
  6. TEVETEN [Concomitant]

REACTIONS (3)
  - DYSPEPSIA [None]
  - DYSPHAGIA [None]
  - SINUSITIS [None]
